FAERS Safety Report 4570590-7 (Version None)
Quarter: 2005Q1

REPORT INFORMATION
  Report Type: 
  Country: None (occurrence: None)
  Receive Date: 20050204
  Receipt Date: 20050125
  Transmission Date: 20050727
  Serious: Yes (Hospitalization)
  Sender: FDA-Public Use
  Company Number: US-GLAXOSMITHKLINE-A0542060A

PATIENT
  Age: 59 Year
  Sex: Male
  Weight: 65 kg

DRUGS (2)
  1. TOPOTECAN [Suspect]
     Indication: GASTRIC CANCER
     Dosage: 2.3MGM2 CYCLIC
     Route: 048
     Dates: start: 20050120
  2. ZOFRAN [Concomitant]
     Indication: NAUSEA

REACTIONS (2)
  - DEHYDRATION [None]
  - NAUSEA [None]
